FAERS Safety Report 23335271 (Version 1)
Quarter: 2023Q4

REPORT INFORMATION
  Report Type: Spontaneous
  Country: US (occurrence: US)
  Receive Date: 20231225
  Receipt Date: 20231225
  Transmission Date: 20240109
  Serious: Yes (Other)
  Sender: FDA-Public Use
  Company Number: US-CADILA HEALTHCARE LIMITED-US-ZYDUS-101473

PATIENT

DRUGS (10)
  1. METHOTREXATE [Suspect]
     Active Substance: METHOTREXATE
     Indication: B-cell type acute leukaemia
     Dosage: ON DAYS 8 AND 29 OF EACH CYCLE
     Route: 037
  2. CYTARABINE [Suspect]
     Active Substance: CYTARABINE
     Indication: B-cell type acute leukaemia
     Dosage: UNK
     Route: 065
  3. VINCRISTINE [Suspect]
     Active Substance: VINCRISTINE
     Indication: B-cell type acute leukaemia
     Dosage: UNK
     Route: 065
  4. PREDNISONE [Suspect]
     Active Substance: PREDNISONE
     Indication: B-cell type acute leukaemia
     Dosage: UNK
     Route: 065
  5. DAUNORUBICIN [Suspect]
     Active Substance: DAUNORUBICIN
     Indication: B-cell type acute leukaemia
     Dosage: UNK
     Route: 065
  6. PEGASPARGASE [Suspect]
     Active Substance: PEGASPARGASE
     Indication: B-cell type acute leukaemia
     Dosage: UNK
     Route: 065
  7. CYCLOPHOSPHAMIDE [Suspect]
     Active Substance: CYCLOPHOSPHAMIDE
     Indication: B-cell type acute leukaemia
     Dosage: UNK
     Route: 065
  8. MERCAPTOPURINE [Suspect]
     Active Substance: MERCAPTOPURINE
     Indication: B-cell type acute leukaemia
     Dosage: UNK
     Route: 065
  9. BLINATUMOMAB [Concomitant]
     Active Substance: BLINATUMOMAB
     Indication: B-cell type acute leukaemia
     Dosage: 15 MICROGRAM/SQ. METER, QD FOR TWO CYCLES (28 DAYS OF CONTINUOUS INFUSION FOLLOWED BY A 1-WEEK BREAK
     Route: 065
  10. BLINATUMOMAB [Concomitant]
     Active Substance: BLINATUMOMAB
     Dosage: 15 MICROGRAM/SQ. METER, (15 MCG/M2/DAY, EACH CYCLE OF 35 DAYS WITH 28 DAYS OF CONTINUOUS INFUSION)
     Route: 065

REACTIONS (10)
  - Multiple organ dysfunction syndrome [Unknown]
  - Hypertension [Unknown]
  - Syncope [Recovering/Resolving]
  - Febrile neutropenia [Unknown]
  - Ventricular arrhythmia [Unknown]
  - Asthenia [Recovered/Resolved]
  - Pseudomonas infection [Unknown]
  - Aspergillus infection [Unknown]
  - Fungal infection [Unknown]
  - Myelosuppression [Unknown]
